FAERS Safety Report 10611027 (Version 1)
Quarter: 2014Q4

REPORT INFORMATION
  Report Type: Spontaneous
  Country: IT (occurrence: None)
  Receive Date: 20141124
  Receipt Date: 20141124
  Transmission Date: 20150529
  Serious: Yes (Other)
  Sender: FDA-Public Use
  Company Number: FK201405352

PATIENT
  Age: 45 Year
  Sex: Male
  Weight: 60 kg

DRUGS (8)
  1. METHYLPREDNISOLONE. [Concomitant]
     Active Substance: METHYLPREDNISOLONE
  2. PROPOFOL 1% MCT FRESENIUS (PROPOFOL) (PROPOFOL) [Suspect]
     Active Substance: PROPOFOL
     Indication: SEDATION
     Dosage: AVERFAGE 18 ML/H,IV.
     Route: 042
     Dates: start: 20141102, end: 20141106
  3. CLEXANE (ENOXAPARIN SODIUM) [Concomitant]
     Active Substance: ENOXAPARIN SODIUM
  4. FLUCONAZOLE. [Concomitant]
     Active Substance: FLUCONAZOLE
  5. DOXAZOSIN [Concomitant]
     Active Substance: DOXAZOSIN\DOXAZOSIN MESYLATE
  6. MEROPENEM. [Concomitant]
     Active Substance: MEROPENEM
  7. VANCOTEX (VANCOMYCIN HYDROCHLORIDE) [Concomitant]
  8. MIDAZOLAM [Concomitant]
     Active Substance: MIDAZOLAM\MIDAZOLAM HYDROCHLORIDE

REACTIONS (2)
  - Delirium [None]
  - Hypertriglyceridaemia [None]

NARRATIVE: CASE EVENT DATE: 20141106
